FAERS Safety Report 16836686 (Version 3)
Quarter: 2021Q4

REPORT INFORMATION
  Report Type: Other
  Country: AU (occurrence: AU)
  Receive Date: 20190922
  Receipt Date: 20211028
  Transmission Date: 20220303
  Serious: Yes (Other)
  Sender: FDA-Public Use
  Company Number: AU-002147023-PHHY2019AU214515

PATIENT
  Age: 30 Year
  Sex: Female

DRUGS (2)
  1. OMALIZUMAB [Suspect]
     Active Substance: OMALIZUMAB
     Indication: Asthma
     Route: 065
  2. OMALIZUMAB [Suspect]
     Active Substance: OMALIZUMAB
     Indication: Cystic fibrosis lung
     Dosage: (COMPASSIONATE EXTRA DOSE)
     Route: 065
     Dates: start: 20191022

REACTIONS (4)
  - Asthma [Unknown]
  - Infective pulmonary exacerbation of cystic fibrosis [Not Recovered/Not Resolved]
  - Pulmonary function test decreased [Unknown]
  - Drug ineffective [Unknown]
